FAERS Safety Report 25607693 (Version 8)
Quarter: 2025Q4

REPORT INFORMATION
  Report Type: Report from Study
  Country: EU (occurrence: EU)
  Receive Date: 20250725
  Receipt Date: 20251121
  Transmission Date: 20260117
  Serious: Yes (Other)
  Sender: NOVARTIS
  Company Number: EU-002147023-NVSC2025IE117271

PATIENT
  Age: 72 Year
  Sex: Female

DRUGS (2)
  1. KISQALI [Suspect]
     Active Substance: RIBOCICLIB SUCCINATE
     Indication: Breast cancer metastatic
     Dosage: 600 MG
     Route: 048
     Dates: start: 20250714
  2. KISQALI [Suspect]
     Active Substance: RIBOCICLIB SUCCINATE
     Dosage: 600 MG
     Route: 048
     Dates: start: 20250717

REACTIONS (17)
  - Bradycardia [Not Recovered/Not Resolved]
  - Neutropenia [Not Recovered/Not Resolved]
  - Restless legs syndrome [Unknown]
  - Tinnitus [Not Recovered/Not Resolved]
  - Sleep disorder [Not Recovered/Not Resolved]
  - Cold sweat [Not Recovered/Not Resolved]
  - Hyperhidrosis [Not Recovered/Not Resolved]
  - Tearfulness [Unknown]
  - Palpitations [Recovering/Resolving]
  - Feeling hot [Unknown]
  - Pain in extremity [Not Recovered/Not Resolved]
  - Dyspepsia [Recovering/Resolving]
  - Diarrhoea [Recovered/Resolved]
  - Constipation [Recovering/Resolving]
  - Headache [Not Recovered/Not Resolved]
  - Nausea [Unknown]
  - Fatigue [Not Recovered/Not Resolved]

NARRATIVE: CASE EVENT DATE: 20250716
